FAERS Safety Report 15049522 (Version 2)
Quarter: 2018Q3

REPORT INFORMATION
  Report Type: Spontaneous
  Country: JP (occurrence: JP)
  Receive Date: 20180622
  Receipt Date: 20180730
  Transmission Date: 20181010
  Serious: Yes (Hospitalization)
  Sender: FDA-Public Use
  Company Number: JP-OTSUKA-2018_016936

PATIENT
  Age: 80 Year
  Sex: Male

DRUGS (1)
  1. PLETAAL OD TABLETS 50MG [Suspect]
     Active Substance: CILOSTAZOL
     Indication: PRODUCT USED FOR UNKNOWN INDICATION
     Dosage: UNK
     Route: 048

REACTIONS (2)
  - Pulse abnormal [Unknown]
  - Chest pain [Recovered/Resolved]
